FAERS Safety Report 6181969-4 (Version None)
Quarter: 2009Q2

REPORT INFORMATION
  Report Type: 
  Country: None (occurrence: None)
  Receive Date: 20090505
  Receipt Date: 20090423
  Transmission Date: 20091009
  Serious: Yes (Hospitalization)
  Sender: FDA-Public Use
  Company Number: 235098J08USA

PATIENT
  Age: 57 Year
  Sex: Female
  Weight: 59.9 kg

DRUGS (1)
  1. REBIF [Suspect]
     Indication: OFF LABEL USE
     Dosage: 22 MCG, 3 IN 1 WEEKS, SUBCUTANEOUS
     Route: 058
     Dates: start: 20090101

REACTIONS (3)
  - DEPRESSION [None]
  - PAIN [None]
  - TRIGEMINAL NEURALGIA [None]
